FAERS Safety Report 9007543 (Version 1)
Quarter: 2013Q1

REPORT INFORMATION
  Report Type: Spontaneous
  Country: US (occurrence: US)
  Receive Date: 20130111
  Receipt Date: 20130111
  Transmission Date: 20140127
  Serious: Yes (Other)
  Sender: FDA-Public Use
  Company Number: US-009507513-1007USA03878

PATIENT
  Age: 9 Year
  Sex: Male
  Weight: 25.86 kg

DRUGS (1)
  1. SINGULAIR [Suspect]
     Indication: ASTHMA
     Dosage: 1 DF, QD
     Route: 048
     Dates: start: 20070101, end: 20091118

REACTIONS (3)
  - Aggression [Unknown]
  - Coprolalia [Unknown]
  - Thinking abnormal [Unknown]
